FAERS Safety Report 14979409 (Version 1)
Quarter: 2018Q2

REPORT INFORMATION
  Report Type: Spontaneous
  Country: GB (occurrence: GB)
  Receive Date: 20180606
  Receipt Date: 20180606
  Transmission Date: 20180711
  Serious: Yes (Life-Threatening, Other)
  Sender: FDA-Public Use
  Company Number: GB-B. BRAUN MEDICAL INC.-2049074

PATIENT
  Age: 49 Year
  Sex: Female
  Weight: 82.72 kg

DRUGS (2)
  1. LIDOCAINE HYDROCHLORIDE AND DEXTROSE [Suspect]
     Active Substance: DEXTROSE\LIDOCAINE HYDROCHLORIDE
     Indication: ANAESTHESIA
     Route: 042
     Dates: start: 20170704
  2. ELLESTE-SOLO [Concomitant]
     Dates: start: 20161115

REACTIONS (4)
  - Presyncope [None]
  - Hyperhidrosis [None]
  - Anaphylactic reaction [Recovering/Resolving]
  - Tachycardia [None]

NARRATIVE: CASE EVENT DATE: 20170704
